FAERS Safety Report 13391911 (Version 1)
Quarter: 2017Q1

REPORT INFORMATION
  Report Type: Spontaneous
  Country: US (occurrence: US)
  Receive Date: 20170331
  Receipt Date: 20170331
  Transmission Date: 20170429
  Serious: No
  Sender: FDA-Public Use
  Company Number: US-BIOMARINAP-US-2017-113280

PATIENT
  Age: 14 Year
  Sex: Male
  Weight: 54.55 kg

DRUGS (2)
  1. KEFLEX [Concomitant]
     Active Substance: CEPHALEXIN
     Indication: CYST
  2. VIMIZIM [Suspect]
     Active Substance: ELOSULFASE ALFA
     Indication: MUCOPOLYSACCHARIDOSIS IV
     Dosage: UNK UNK, QW
     Route: 042
     Dates: start: 20140227

REACTIONS (1)
  - Pyrexia [Recovering/Resolving]

NARRATIVE: CASE EVENT DATE: 20170310
